FAERS Safety Report 17397121 (Version 1)
Quarter: 2020Q1

REPORT INFORMATION
  Report Type: Spontaneous
  Country: US (occurrence: US)
  Receive Date: 20200210
  Receipt Date: 20200210
  Transmission Date: 20200409
  Serious: No
  Sender: FDA-Public Use
  Company Number: US-VERTEX PHARMACEUTICALS-2020-001900

PATIENT
  Sex: Male

DRUGS (7)
  1. PERTZYE [Concomitant]
     Active Substance: PANCRELIPASE AMYLASE\PANCRELIPASE LIPASE\PANCRELIPASE PROTEASE
  2. TRIKAFTA [Suspect]
     Active Substance: ELEXACAFTOR\IVACAFTOR\TEZACAFTOR
     Indication: CYSTIC FIBROSIS
     Dosage: (100MG ELEXACAFTOR/50MG TEZACATOR/75MG IVACAFTOR; 150MG IVACAFTOR)  2 QAM
     Route: 048
     Dates: start: 20191226
  3. SODIUM CHLORIDE. [Concomitant]
     Active Substance: SODIUM CHLORIDE
  4. URSODIOL. [Concomitant]
     Active Substance: URSODIOL
  5. SINGULAIR [Concomitant]
     Active Substance: MONTELUKAST SODIUM
  6. PULMOZYME [Concomitant]
     Active Substance: DORNASE ALFA
  7. MIRALAX [Concomitant]
     Active Substance: POLYETHYLENE GLYCOL 3350

REACTIONS (1)
  - Fatigue [Not Recovered/Not Resolved]
